FAERS Safety Report 9823433 (Version 2)
Quarter: 2014Q1

REPORT INFORMATION
  Report Type: Spontaneous
  Country: CA (occurrence: CA)
  Receive Date: 20140116
  Receipt Date: 20140304
  Transmission Date: 20141002
  Serious: Yes (Other)
  Sender: FDA-Public Use
  Company Number: CHPA2014CA000773

PATIENT
  Age: 57 Year
  Sex: Male

DRUGS (2)
  1. HABITROL [Suspect]
     Dosage: 21 MG, QD
     Route: 062
     Dates: start: 20140102
  2. HABITROL [Suspect]
     Dosage: UNK
     Route: 062

REACTIONS (1)
  - Skin disorder [Recovering/Resolving]
